FAERS Safety Report 8350760-2 (Version None)
Quarter: 2012Q2

REPORT INFORMATION
  Report Type: 
  Country: None (occurrence: None)
  Receive Date: 20120510
  Receipt Date: 20120503
  Transmission Date: 20120825
  Serious: Yes (Hospitalization, Congenital Anomaly)
  Sender: FDA-Public Use
  Company Number: US-GLAXOSMITHKLINE-A0976988A

PATIENT
  Sex: Female

DRUGS (4)
  1. VITAMIN [Concomitant]
  2. PAXIL [Suspect]
     Indication: PANIC ATTACK
     Route: 064
  3. FOLIC ACID [Concomitant]
  4. IRON [Concomitant]

REACTIONS (2)
  - CLEFT LIP AND PALATE [None]
  - FOETAL EXPOSURE DURING PREGNANCY [None]
